FAERS Safety Report 14294031 (Version 1)
Quarter: 2017Q4

REPORT INFORMATION
  Report Type: Spontaneous
  Country: FR (occurrence: FR)
  Receive Date: 20171217
  Receipt Date: 20171217
  Transmission Date: 20180321
  Serious: Yes (Life-Threatening, Hospitalization)
  Sender: FDA-Public Use
  Company Number: FR-CIPLA LTD.-2017FR25472

PATIENT

DRUGS (3)
  1. SIMVASTATIN. [Suspect]
     Active Substance: SIMVASTATIN
     Dosage: 0.5 DF, ONCE A DAY
     Route: 065
  2. ACETYLSALICYLATE [Suspect]
     Active Substance: UNSPECIFIED INGREDIENT
     Dosage: 1 DF, ONCE A DAY
     Route: 048
  3. LEVOFLOXACIN. [Suspect]
     Active Substance: LEVOFLOXACIN
     Indication: PRODUCTIVE COUGH
     Dosage: 500 MG, UNK
     Route: 048

REACTIONS (2)
  - Haemarthrosis [Recovered/Resolved]
  - Tendon rupture [Recovered/Resolved with Sequelae]

NARRATIVE: CASE EVENT DATE: 20171018
